FAERS Safety Report 5705615-6 (Version None)
Quarter: 2008Q2

REPORT INFORMATION
  Report Type: 
  Country: None (occurrence: None)
  Receive Date: 20080411
  Receipt Date: 20080411
  Transmission Date: 20081010
  Serious: Yes (Hospitalization, Other)
  Sender: FDA-Public Use
  Company Number: 23320071621

PATIENT
  Age: 71 Year
  Sex: Female

DRUGS (2)
  1. SOMATULINE AUTOGEL 120MG (LANREOTIDE ACETATE) (LANREOTIDE ACETATE) [Suspect]
     Indication: ACROMEGALY
     Dosage: 120 MG EVERY 4 WEEKS INTRAMUSCULAR
     Route: 030
     Dates: start: 20050601
  2. ATORVASTATIN CALCIUM [Concomitant]

REACTIONS (2)
  - BLADDER TRANSITIONAL CELL CARCINOMA STAGE II [None]
  - HAEMATURIA [None]
